FAERS Safety Report 13951839 (Version 2)
Quarter: 2017Q3

REPORT INFORMATION
  Report Type: Report from Study
  Country: US (occurrence: US)
  Receive Date: 20170908
  Receipt Date: 20170919
  Transmission Date: 20171128
  Serious: Yes (Death, Hospitalization)
  Sender: FDA-Public Use
  Company Number: US-ACTELION-A-NJ2015-123513

PATIENT
  Age: 62 Year
  Sex: Male

DRUGS (1)
  1. VALCHLOR [Suspect]
     Active Substance: MECHLORETHAMINE
     Indication: MYCOSIS FUNGOIDES
     Dosage: UNK, QD
     Route: 061

REACTIONS (5)
  - Sinusitis [Unknown]
  - Asthenia [Unknown]
  - Radiotherapy [Unknown]
  - Death [Fatal]
  - Seasonal allergy [Unknown]

NARRATIVE: CASE EVENT DATE: 20170911
